FAERS Safety Report 4809086-3 (Version None)
Quarter: 2005Q4

REPORT INFORMATION
  Report Type: 
  Country: None (occurrence: None)
  Receive Date: 20051021
  Receipt Date: 20051021
  Transmission Date: 20060501
  Serious: No
  Sender: FDA-Public Use
  Company Number: None

PATIENT
  Age: 79 Year
  Sex: Female
  Weight: 54.4316 kg

DRUGS (1)
  1. SIMVASTATIN [Suspect]
     Indication: HYPERLIPIDAEMIA
     Dosage: 40MG QHS PO
     Route: 048
     Dates: start: 20050630, end: 20050930

REACTIONS (7)
  - ANOREXIA [None]
  - BLOOD IMMUNOGLOBULIN A INCREASED [None]
  - COLITIS [None]
  - DEPRESSION [None]
  - DIARRHOEA [None]
  - FREQUENT BOWEL MOVEMENTS [None]
  - WEIGHT DECREASED [None]
